FAERS Safety Report 11132351 (Version 6)
Quarter: 2020Q3

REPORT INFORMATION
  Report Type: Spontaneous
  Country: US (occurrence: US)
  Receive Date: 20150522
  Receipt Date: 20200929
  Transmission Date: 20201102
  Serious: Yes (Hospitalization, Other)
  Sender: FDA-Public Use
  Company Number: US-PFIZER INC-2015169360

PATIENT
  Age: 8 Year
  Sex: Male
  Weight: 39.1 kg

DRUGS (7)
  1. BENEFIX [Suspect]
     Active Substance: COAGULATION FACTOR IX RECOMBINANT HUMAN\ISOPROPYL ALCOHOL
     Dosage: UNK
     Dates: start: 20191206
  2. BENEFIX [Suspect]
     Active Substance: COAGULATION FACTOR IX RECOMBINANT HUMAN\ISOPROPYL ALCOHOL
     Dosage: 1 DF (1 DF = 3000 UNITS FOR MAJOR BLEEDS )
  3. BENEFIX [Suspect]
     Active Substance: COAGULATION FACTOR IX RECOMBINANT HUMAN\ISOPROPYL ALCOHOL
     Indication: HAEMORRHAGE
     Dosage: UNK (GIVE IV APPROXIMATELY 1250 UNITS (+/? 10%) FOR MINOR BLEEDS AND 2500 UNITS (+/? 10%)
     Route: 042
     Dates: start: 20170120
  4. BENEFIX [Suspect]
     Active Substance: COAGULATION FACTOR IX RECOMBINANT HUMAN\ISOPROPYL ALCOHOL
     Dosage: 1 DF (1 DF =1500 UNITS FOR MINOR BLEEDS )
  5. BENEFIX [Suspect]
     Active Substance: COAGULATION FACTOR IX RECOMBINANT HUMAN\ISOPROPYL ALCOHOL
     Dosage: 1 DF (1 DF = 2592 IN THE HOSPITAL)
     Route: 042
     Dates: start: 20191208, end: 20191209
  6. BENEFIX [Suspect]
     Active Substance: COAGULATION FACTOR IX RECOMBINANT HUMAN\ISOPROPYL ALCOHOL
     Indication: FACTOR IX DEFICIENCY
     Dosage: 1 DF (1 DF = 2614 UNITS, IN CLINIC )
     Route: 042
     Dates: start: 200912, end: 200912
  7. AMICAR [Concomitant]
     Active Substance: AMINOCAPROIC ACID
     Indication: HAEMORRHAGE
     Dosage: UNK

REACTIONS (5)
  - Limb crushing injury [Unknown]
  - Tooth socket haemorrhage [Recovered/Resolved]
  - Syncope [Unknown]
  - Drug ineffective [Unknown]
  - Tooth disorder [Recovered/Resolved]

NARRATIVE: CASE EVENT DATE: 201911
